FAERS Safety Report 5043823-0 (Version None)
Quarter: 2006Q2

REPORT INFORMATION
  Report Type: 
  Country: None (occurrence: None)
  Receive Date: 20060628
  Receipt Date: 20060614
  Transmission Date: 20061013
  Serious: Yes (Other)
  Sender: FDA-Public Use
  Company Number: B0428513A

PATIENT
  Age: 30 Year
  Sex: Female

DRUGS (5)
  1. COMBIVIR [Suspect]
     Indication: HIV INFECTION
  2. RETROVIR [Suspect]
     Indication: ANTIVIRAL PROPHYLAXIS
     Dosage: INTRAVENOUS
     Route: 042
  3. NEVIRAPINE [Suspect]
     Indication: HIV INFECTION
  4. ANTIBIOTICS (ANTIBIOTICS) [Suspect]
  5. STEROID (STEROID) [Suspect]

REACTIONS (6)
  - APPENDICITIS [None]
  - CHORIOAMNIONITIS [None]
  - DRUG EXPOSURE BEFORE PREGNANCY [None]
  - DRUG EXPOSURE DURING PREGNANCY [None]
  - FUNISITIS [None]
  - PREMATURE RUPTURE OF MEMBRANES [None]
